FAERS Safety Report 9530707 (Version 1)
Quarter: 2013Q3

REPORT INFORMATION
  Report Type: Spontaneous
  Country: US (occurrence: None)
  Receive Date: 20130916
  Receipt Date: 20130916
  Transmission Date: 20140515
  Serious: No
  Sender: FDA-Public Use
  Company Number: None

PATIENT
  Age: 75 Year
  Sex: Female
  Weight: 58.51 kg

DRUGS (2)
  1. LEVOFLOXACIN [Suspect]
     Indication: EAR DISORDER
     Dosage: TAB 1 A DAY
     Dates: start: 20130805
  2. CIPRODEX [Concomitant]

REACTIONS (7)
  - Pain in extremity [None]
  - Musculoskeletal pain [None]
  - Local swelling [None]
  - Eye swelling [None]
  - Muscular weakness [None]
  - Cataract [None]
  - Pain in extremity [None]
